FAERS Safety Report 8884088 (Version 1)
Quarter: 2012Q4

REPORT INFORMATION
  Report Type: 
  Country: US (occurrence: US)
  Receive Date: 20121104
  Receipt Date: 20121104
  Transmission Date: 20130627
  Serious: No
  Sender: FDA-Public Use
  Company Number: US-ASTRAZENECA-2012SE80699

PATIENT
  Age: 50 Year
  Sex: Female

DRUGS (9)
  1. CRESTOR [Suspect]
     Route: 048
     Dates: start: 20101215
  2. LEVOTHYROXINE [Concomitant]
     Route: 048
     Dates: start: 20101215
  3. TOPAMAX [Concomitant]
     Route: 048
     Dates: start: 20101215
  4. IMITREX [Concomitant]
     Route: 048
     Dates: start: 20101215
  5. VERAPAMIL [Concomitant]
     Route: 048
     Dates: start: 20101215
  6. PROVENTIL [Concomitant]
     Route: 048
     Dates: start: 20101215
  7. CITALOPRAM [Concomitant]
     Route: 048
     Dates: start: 20101215
  8. AMITIZA [Concomitant]
     Route: 048
     Dates: start: 20101215
  9. SPIRIVA [Concomitant]
     Route: 048
     Dates: start: 20101215

REACTIONS (13)
  - Hypercholesterolaemia [Unknown]
  - Substance use [Unknown]
  - Gastrooesophageal reflux disease [Unknown]
  - Uterine leiomyoma [Unknown]
  - Irritable bowel syndrome [Unknown]
  - Ovarian cyst [Unknown]
  - Hypoglycaemia [Unknown]
  - Migraine without aura [Unknown]
  - Bronchitis [Unknown]
  - Arthralgia [Unknown]
  - Brain scan abnormal [Unknown]
  - Nervous system disorder [Unknown]
  - Myocardial ischaemia [Unknown]
